FAERS Safety Report 23983132 (Version 1)
Quarter: 2024Q2

REPORT INFORMATION
  Report Type: Spontaneous
  Country: US (occurrence: US)
  Receive Date: 20240617
  Receipt Date: 20240617
  Transmission Date: 20240716
  Serious: No
  Sender: FDA-Public Use
  Company Number: US-BRISTOL-MYERS SQUIBB COMPANY-2024-097080

PATIENT
  Age: 69 Year
  Sex: Female

DRUGS (36)
  1. REVLIMID [Suspect]
     Active Substance: LENALIDOMIDE
     Indication: Plasma cell myeloma
     Route: 048
     Dates: start: 20230315
  2. ACYCLOVIR [Concomitant]
     Active Substance: ACYCLOVIR
     Indication: Infection
     Route: 048
  3. ALBUTEROL SULFATE [Concomitant]
     Active Substance: ALBUTEROL SULFATE
     Indication: Wheezing
     Dosage: INHALE 1 TO 2 PUFFS BY MOUTH EVERY 4HOURS AS NEEDED
     Route: 048
  4. ALBUTEROL SULFATE [Concomitant]
     Active Substance: ALBUTEROL SULFATE
     Indication: Dyspnoea
  5. AREXVY [Concomitant]
     Active Substance: RECOMBINANT RESPIRATORY SYNCYTIAL VIRUS PRE-FUSION F PROTEIN
     Indication: Product used for unknown indication
     Dosage: ADMINISTER 0.5ML IN ?THE MUSCLE AS ?DIRECTED TODAY
     Route: 058
  6. ATORVASTATIN [Concomitant]
     Active Substance: ATORVASTATIN
     Indication: Product used for unknown indication
     Route: 048
  7. AZITHROMYCIN [Concomitant]
     Active Substance: AZITHROMYCIN
     Indication: Product used for unknown indication
     Dosage: TAKE AS DIRECTED
     Route: 048
  8. AZITHROMYCIN [Concomitant]
     Active Substance: AZITHROMYCIN
     Indication: Product used for unknown indication
     Dosage: TAKE 2 TABLETS BY ?MOUTH ON DAY 1, ?THEN TAKE 1 TABLET ?BY MOUTH DAILY FOR ?4 DAYS
     Route: 048
  9. BENZONATATE [Concomitant]
     Active Substance: BENZONATATE
     Indication: Product used for unknown indication
     Dosage: TAKE 2 TABLETS BY ?MOUTH ON DAY 1, ?THEN TAKE 1 TABLET ?BY MOUTH DAILY FOR ?4 DAYS
     Route: 048
  10. BISACODYL [Concomitant]
     Active Substance: BISACODYL
     Indication: Product used for unknown indication
     Route: 048
  11. COMIRNATY [Concomitant]
     Indication: Product used for unknown indication
     Dosage: 0.3 ML IN ?THE MUSCLE AS ?DIRECTED TODAY
  12. CYCLOBENZAPRINE [Concomitant]
     Active Substance: CYCLOBENZAPRINE
     Indication: Product used for unknown indication
     Dosage: TAKE 1/2 TABLET BY ?MOUTH EVERY 8 ?HOURS AS NEEDED
  13. DEXAMETHASONE [Concomitant]
     Active Substance: DEXAMETHASONE
     Indication: Product used for unknown indication
     Dosage: TAKE 5 AB SB ?MOUTH DAILY AS ?DIRECTED
     Route: 048
  14. ESTRADIOL [Concomitant]
     Active Substance: ESTRADIOL
     Indication: Product used for unknown indication
     Dosage: PLACE 1/2 GRAM ?VAGINALLY TWICE ?DAILY FOR 1 WEEK ?THEN ONCE A DAY ?FOR 1 WEEK THEN ?TWICE WEEKLY TH
  15. FLUAD NOS [Concomitant]
     Active Substance: INFLUENZA VIRUS VACCINE
     Indication: Product used for unknown indication
     Dosage: ADMINISTER 0.5ML I ?THE MUSCLE TODAY
  16. FUROSEMIDE [Concomitant]
     Active Substance: FUROSEMIDE
     Indication: Product used for unknown indication
     Dosage: TAKE 1 TABLET BY ?MOUTH EVERY MORNING
  17. GABAPENTIN [Concomitant]
     Active Substance: GABAPENTIN
     Indication: Product used for unknown indication
     Dosage: TAKE 1 TABLET BY ?MOUTH TWICE DAILY AND THRICE DAILY
     Route: 048
  18. METHOCARBAMOL [Concomitant]
     Active Substance: METHOCARBAMOL
     Indication: Product used for unknown indication
     Dosage: TABLETS ?TAKE 1 TAB BY MOUTH EVERY 6 ?HOURS AS NEEDED ?FOR MUSCLE ?TIGHTNESS
     Route: 048
  19. MONTELUKAST [Concomitant]
     Active Substance: MONTELUKAST SODIUM
     Indication: Product used for unknown indication
     Dosage: TAKE 1 TABLET BY ?MOUTH EVERY NIGHT ?AS NEEDED FOR ?ASTHMA OR ?ALLERGIES
     Route: 048
  20. MORPHINE SULFATE [Concomitant]
     Active Substance: MORPHINE SULFATE
     Indication: Product used for unknown indication
     Dosage: TAKE 1 TABLET BY ?MOUTH EVERY 12 HOURS
     Route: 048
  21. NALOXONE [Concomitant]
     Active Substance: NALOXONE
     Indication: Product used for unknown indication
     Dosage: 1 SPRAY IN NOSTRIL AS NEEDED FOR OPIOD REVERSAL
     Route: 048
  22. ONDANSETRON [Concomitant]
     Active Substance: ONDANSETRON
     Indication: Nausea
     Dosage: DISSOLVE 1 TAB ON THE TONGUE EVERY 8 HOURS AS NEEDED
     Route: 048
  23. ONDANSETRON [Concomitant]
     Active Substance: ONDANSETRON
     Indication: Vomiting
  24. ACETAMINOPHEN\OXYCODONE HYDROCHLORIDE [Concomitant]
     Active Substance: ACETAMINOPHEN\OXYCODONE HYDROCHLORIDE
     Indication: Pain
     Dosage: TAKE 1 TAB BY MOUTH EVERY 4 HOURS AS NEEDED
     Route: 048
  25. PREDNISONE [Concomitant]
     Active Substance: PREDNISONE
     Indication: Product used for unknown indication
     Dosage: TAKE 1 TAB BY MOUTH DAILY FOR 5 DAYS
     Route: 048
  26. PREVIDENT [Concomitant]
     Active Substance: SODIUM FLUORIDE
     Indication: Product used for unknown indication
     Dosage: BRUSH ?RIBBON ON ?TOOTHBRUSH AT ?BEDTIME FOR 1 FULL ?MINUTE. THEN SPIT ?OUT. DO NOT RINSE.
  27. SENNA [Concomitant]
     Active Substance: SENNA LEAF\SENNOSIDES\SENNOSIDES A AND B
     Indication: Product used for unknown indication
     Dosage: TAKE 2 TAB BY MOUTH DAILY
  28. SHINGRIX [Concomitant]
     Active Substance: RECOMBINANT VARICELLA ZOSTER VIRUS (VZV) GLYCOPROTEIN E
     Indication: Product used for unknown indication
     Dosage: ADMINISTER 0.5ML IN THE MUSCLE TODAY
  29. TRAMADOL [Concomitant]
     Active Substance: TRAMADOL\TRAMADOL HYDROCHLORIDE
     Indication: Product used for unknown indication
     Dosage: TAKE 1 TABLET BY ?MOUTH EVERY 4 ?HOURS FOR UP TO 3 ?DAYS AS NEEDED FOR ?PAIN. TAKE LOWEST ?DOSE POSS
  30. TRIAMCINOLONE [Concomitant]
     Active Substance: TRIAMCINOLONE
     Indication: Product used for unknown indication
     Dosage: APPLY TYPICALLY TO ?THE AFFECTED AREA ?TWICE DAILY AS ?NEEDED
  31. VERAPAMIL [Concomitant]
     Active Substance: VERAPAMIL HYDROCHLORIDE
     Indication: Product used for unknown indication
     Dosage: TAKE 1 TABLET BY ?MOUTH EVERY DAY
  32. ALLEGRA ALLERGY [Concomitant]
     Active Substance: FEXOFENADINE HYDROCHLORIDE
     Indication: Product used for unknown indication
  33. CALCIUM [Concomitant]
     Active Substance: CALCIUM
     Indication: Product used for unknown indication
  34. IMODIUM [Concomitant]
     Active Substance: LOPERAMIDE HYDROCHLORIDE
     Indication: Product used for unknown indication
  35. PRILOSEC [Concomitant]
     Active Substance: OMEPRAZOLE MAGNESIUM
     Indication: Product used for unknown indication
  36. CHOLECALCIFEROL [Concomitant]
     Active Substance: CHOLECALCIFEROL
     Indication: Product used for unknown indication
     Dosage: 1000 UNIT

REACTIONS (1)
  - Diarrhoea [Unknown]

NARRATIVE: CASE EVENT DATE: 20230101
